FAERS Safety Report 19435939 (Version 1)
Quarter: 2021Q2

REPORT INFORMATION
  Report Type: Report from Study
  Country: JP (occurrence: JP)
  Receive Date: 20210618
  Receipt Date: 20210618
  Transmission Date: 20210717
  Serious: Yes (Hospitalization)
  Sender: FDA-Public Use
  Company Number: JP-ROCHE-2806133

PATIENT
  Age: 69 Year
  Sex: Male
  Weight: 57.4 kg

DRUGS (28)
  1. BEVACIZUMAB. [Suspect]
     Active Substance: BEVACIZUMAB
     Indication: HEPATOCELLULAR CARCINOMA
     Dosage: ON 15/DEC/2020, HE RECEIVED MOST RECENT DOSE OF BEVACIZUMAB (890 MG) PRIOR TO ONSET OF ADVERSE EVENT
     Route: 042
     Dates: start: 20201124
  2. TAMSULOSIN HYDROCHLORIDE OD [Concomitant]
     Active Substance: TAMSULOSIN HYDROCHLORIDE
     Indication: BENIGN PROSTATIC HYPERPLASIA
     Dates: start: 20190712
  3. HUMALOG MIX50/50 [Concomitant]
     Active Substance: INSULIN LISPRO
     Indication: TYPE 1 DIABETES MELLITUS
     Dates: start: 20201022
  4. BIOFERMIN [BACILLUS SUBTILIS;LACTOMIN] [Concomitant]
     Indication: IRRITABLE BOWEL SYNDROME
     Dates: start: 20120820
  5. ATARAX?P [Concomitant]
     Active Substance: HYDROXYZINE HYDROCHLORIDE
     Indication: BIOPSY KIDNEY
     Route: 051
     Dates: start: 20210407, end: 20210407
  6. SOLYUGEN F [Concomitant]
     Active Substance: CALCIUM CHLORIDE\POTASSIUM CHLORIDE\SODIUM ACETATE\SODIUM CHLORIDE
     Indication: FLUID REPLACEMENT
     Dates: start: 20210407, end: 20210407
  7. CAMOSTAT MESILATE [Concomitant]
     Active Substance: CAMOSTAT MESYLATE
     Indication: PANCREATITIS CHRONIC
     Dates: start: 20120818
  8. AMLODIPINE [Concomitant]
     Active Substance: AMLODIPINE BESYLATE
     Indication: HYPERTENSION
     Dates: start: 20170901
  9. KETOPROFEN. [Concomitant]
     Active Substance: KETOPROFEN
     Indication: ARTHRITIS
     Dates: start: 20120813
  10. SOLDEM 1 [Concomitant]
     Active Substance: DEXTROSE\SODIUM CHLORIDE\SODIUM LACTATE
     Indication: FLUID REPLACEMENT
     Dates: start: 20210406, end: 20210408
  11. REMITCH OD [Concomitant]
     Indication: PRURITUS
     Dates: start: 20210309, end: 20210314
  12. SOSEGON [Concomitant]
     Active Substance: PENTAZOCINE
     Indication: BIOPSY KIDNEY
     Dates: start: 20210407, end: 20210407
  13. HUMULIN NOS [Concomitant]
     Active Substance: INSULIN HUMAN
     Indication: TYPE 1 DIABETES MELLITUS
     Dates: start: 20210406, end: 20210408
  14. LOPERAMIDE HYDROCHLORIDE. [Concomitant]
     Active Substance: LOPERAMIDE HYDROCHLORIDE
     Indication: IRRITABLE BOWEL SYNDROME
     Dates: start: 20141002
  15. LENDORMIN [Concomitant]
     Active Substance: BROTIZOLAM
     Indication: INSOMNIA
     Dates: start: 20201225
  16. XYLOCAIN [Concomitant]
     Indication: ANAESTHESIA
     Dates: start: 20210407, end: 20210407
  17. URSODEOXYCHOLIC ACID [Concomitant]
     Active Substance: URSODIOL
     Indication: HEPATITIS C
     Dates: start: 20120818
  18. LORATADINE. [Concomitant]
     Active Substance: LORATADINE
     Indication: DERMATITIS ALLERGIC
     Dates: start: 20120818
  19. LANSOPRAZOLE OD [Concomitant]
     Active Substance: LANSOPRAZOLE
     Indication: GASTRITIS
     Dates: start: 20170120
  20. ORTEXER [Concomitant]
     Indication: STOMATITIS
     Route: 061
     Dates: start: 20201225, end: 20201225
  21. ATEZOLIZUMAB. [Suspect]
     Active Substance: ATEZOLIZUMAB
     Indication: HEPATOCELLULAR CARCINOMA
     Dosage: ON 15/DEC/2020, HE RECEIVED MOST RECENT DOSE OF ATEZOLIZUMAB (1200 MG) PRIOR TO ONSET OF ADVERSE EVE
     Route: 041
     Dates: start: 20201124
  22. MIGLITOL OD [Concomitant]
     Indication: TYPE 1 DIABETES MELLITUS
     Dates: start: 20120818
  23. TRANCOLON [Concomitant]
     Active Substance: MEPENZOLATE BROMIDE
     Indication: IRRITABLE BOWEL SYNDROME
     Dates: start: 20161104
  24. KETOPROFEN. [Concomitant]
     Active Substance: KETOPROFEN
     Indication: BACK PAIN
  25. XYZAL [Concomitant]
     Active Substance: LEVOCETIRIZINE DIHYDROCHLORIDE
     Indication: PRURITUS
     Dates: start: 20210313, end: 20210317
  26. OLMESARTAN OD [Concomitant]
     Active Substance: OLMESARTAN MEDOXOMIL
     Indication: HYPERTENSION
     Dates: start: 20150716
  27. ZOPICLONE [Concomitant]
     Active Substance: ZOPICLONE
     Indication: INSOMNIA
     Dates: start: 20170407
  28. HEPARINOID [Concomitant]
     Active Substance: CHONDROITIN SULFATE (BOVINE)
     Indication: PRURITUS
     Dates: start: 20210312

REACTIONS (1)
  - Renal impairment [Not Recovered/Not Resolved]

NARRATIVE: CASE EVENT DATE: 20210105
